FAERS Safety Report 9949111 (Version 2)
Quarter: 2014Q2

REPORT INFORMATION
  Report Type: Spontaneous
  Country: US (occurrence: US)
  Receive Date: 20140304
  Receipt Date: 20140506
  Transmission Date: 20141212
  Serious: No
  Sender: FDA-Public Use
  Company Number: US-SHIRE-US201400208

PATIENT
  Sex: 0

DRUGS (13)
  1. VYVANSE [Suspect]
     Indication: ATTENTION DEFICIT/HYPERACTIVITY DISORDER
     Dosage: 140 MG (TWO 70 MG), 1X/DAY:QD
     Route: 048
     Dates: start: 201306, end: 20140123
  2. VYVANSE [Suspect]
     Dosage: 70 MG, 1X/DAY:QD
     Route: 048
     Dates: start: 20140124
  3. VYVANSE [Suspect]
     Dosage: UNK UNK, 1X/DAY:QD
     Route: 048
     Dates: end: 201306
  4. XANAX [Concomitant]
     Indication: PANIC ATTACK
     Dosage: 0.5 MG, AS REQ^D
     Route: 048
     Dates: start: 2009
  5. XANAX [Concomitant]
     Indication: SLEEP DISORDER
  6. PROPANOLOL                         /00030001/ [Concomitant]
     Indication: TREMOR
     Dosage: 120 MG (TWO 60 MG), 1X/DAY:QD
     Route: 048
     Dates: start: 2011
  7. SINGULAIR [Concomitant]
     Indication: HYPERSENSITIVITY
     Dosage: 10 MG, 1X/DAY:QD
     Route: 048
     Dates: start: 2011
  8. SINGULAIR [Concomitant]
     Indication: ASTHMA
  9. GUAIFENESIN [Concomitant]
     Indication: TREMOR
     Dosage: 10 MG, 1X/DAY:QD
     Route: 048
     Dates: start: 2013
  10. LAMICTAL [Concomitant]
     Indication: ANXIETY
     Dosage: 200 MG, 1X/DAY:QD
     Route: 048
     Dates: start: 2013
  11. LAMICTAL [Concomitant]
     Indication: DEPRESSION
  12. PROZAC [Concomitant]
     Indication: ANXIETY
     Dosage: 60 MG, 1X/DAY:QD
     Route: 048
     Dates: start: 2013
  13. PROZAC [Concomitant]
     Indication: DEPRESSION

REACTIONS (6)
  - Disturbance in attention [Recovered/Resolved]
  - Sinusitis [Recovering/Resolving]
  - Fatigue [Recovered/Resolved]
  - Dry mouth [Recovered/Resolved]
  - Prescribed overdose [Recovered/Resolved]
  - Product quality issue [Unknown]
